FAERS Safety Report 8460237-1 (Version None)
Quarter: 2012Q2

REPORT INFORMATION
  Report Type: 
  Country: None (occurrence: None)
  Receive Date: 20120622
  Receipt Date: 20120607
  Transmission Date: 20120825
  Serious: Yes (Other)
  Sender: FDA-Public Use
  Company Number: CN-PFIZER INC-2012145131

PATIENT
  Age: 58 Year
  Sex: Male

DRUGS (2)
  1. DOXAZOSIN MESYLATE [Suspect]
     Indication: BENIGN PROSTATIC HYPERPLASIA
     Dosage: 4 MG, 1X/DAY
     Route: 048
     Dates: start: 20080915
  2. PROSTAT [Concomitant]
     Indication: BENIGN PROSTATIC HYPERPLASIA
     Dosage: 75 MG, UNK
     Route: 048

REACTIONS (8)
  - HAEMOPTYSIS [None]
  - ASTHENIA [None]
  - COUGH [None]
  - HEADACHE [None]
  - PYREXIA [None]
  - DIZZINESS [None]
  - ABDOMINAL DISCOMFORT [None]
  - NAUSEA [None]
